FAERS Safety Report 4284260-6 (Version None)
Quarter: 2004Q1

REPORT INFORMATION
  Report Type: 
  Country: None (occurrence: None)
  Receive Date: 20040130
  Receipt Date: 20040120
  Transmission Date: 20041129
  Serious: Yes (Hospitalization)
  Sender: FDA-Public Use
  Company Number: 04P-144-0247927-00

PATIENT
  Sex: Male

DRUGS (1)
  1. ERYTHROMYCIN [Suspect]
     Dosage: 250 MG, PER ORAL
     Route: 048
     Dates: start: 19960101

REACTIONS (4)
  - DISEASE RECURRENCE [None]
  - GASTROINTESTINAL HAEMORRHAGE [None]
  - HEPATIC CIRRHOSIS [None]
  - SKIN DISORDER [None]
